FAERS Safety Report 7366002 (Version 2)
Quarter: 2014Q1

REPORT INFORMATION
  Report Type: Spontaneous
  Country: US (occurrence: US)
  Receive Date: 20100426
  Receipt Date: 20140206
  Transmission Date: 20141002
  Serious: Yes (Other)
  Sender: FDA-Public Use
  Company Number: US-JNJFOC-20100404972

PATIENT
  Age: 54 Year
  Sex: Female
  Weight: 58.97 kg

DRUGS (6)
  1. DURAGESIC [Suspect]
     Indication: PAIN
     Route: 062
     Dates: start: 2008, end: 201003
  2. DURAGESIC [Suspect]
     Indication: NERVE INJURY
     Route: 062
     Dates: start: 2008, end: 201003
  3. DURAGESIC [Suspect]
     Indication: INTERVERTEBRAL DISC DEGENERATION
     Route: 062
     Dates: start: 2008, end: 201003
  4. DURAGESIC [Suspect]
     Indication: PAIN
     Dosage: NDC 50458-0094-05
     Route: 062
     Dates: start: 201003
  5. DURAGESIC [Suspect]
     Indication: NERVE INJURY
     Dosage: NDC 50458-0094-05
     Route: 062
     Dates: start: 201003
  6. DURAGESIC [Suspect]
     Indication: INTERVERTEBRAL DISC DEGENERATION
     Dosage: NDC 50458-0094-05
     Route: 062
     Dates: start: 201003

REACTIONS (4)
  - Withdrawal syndrome [Recovered/Resolved]
  - Convulsion [Recovered/Resolved]
  - Wrong technique in drug usage process [Not Recovered/Not Resolved]
  - Product quality issue [Unknown]
